FAERS Safety Report 4632077-2 (Version None)
Quarter: 2005Q2

REPORT INFORMATION
  Report Type: 
  Country: None (occurrence: None)
  Receive Date: 20050411
  Receipt Date: 20050215
  Transmission Date: 20051028
  Serious: Yes (Death, Hospitalization, Other)
  Sender: FDA-Public Use
  Company Number: FRWYE433417FEB05

PATIENT
  Age: 60 Year
  Sex: Male

DRUGS (1)
  1. ENBREL [Suspect]
     Indication: DRUG USE FOR UNKNOWN INDICATION
     Dosage: UNKNOWN
     Route: 058

REACTIONS (6)
  - LYMPHADENITIS [None]
  - MEDIASTINAL INFECTION [None]
  - SEPSIS [None]
  - SYSTEMIC CANDIDA [None]
  - TUBERCULOSIS [None]
  - VITAL FUNCTIONS ABNORMAL [None]
